FAERS Safety Report 19314066 (Version 1)
Quarter: 2021Q2

REPORT INFORMATION
  Report Type: Spontaneous
  Country: US (occurrence: US)
  Receive Date: 20210527
  Receipt Date: 20210527
  Transmission Date: 20210717
  Serious: No
  Sender: FDA-Public Use
  Company Number: None

PATIENT

DRUGS (1)
  1. PERMETHRIN 5% TOPICAL CREAM, GENERIC FOR ELMITE [Suspect]
     Active Substance: PERMETHRIN
     Indication: ACARODERMATITIS
     Dosage: ?          QUANTITY:2 DF DOSAGE FORM;?
     Route: 058
     Dates: start: 20210301, end: 20210315

REACTIONS (2)
  - Pruritus [None]
  - Formication [None]

NARRATIVE: CASE EVENT DATE: 20210315
